FAERS Safety Report 9614709 (Version 1)
Quarter: 2013Q4

REPORT INFORMATION
  Report Type: Spontaneous
  Country: US (occurrence: None)
  Receive Date: 20131009
  Receipt Date: 20131009
  Transmission Date: 20140711
  Serious: No
  Sender: FDA-Public Use
  Company Number: None

PATIENT
  Age: 9 Year
  Sex: Female
  Weight: 58.51 kg

DRUGS (1)
  1. QVAR [Suspect]
     Indication: ASTHMA
     Dosage: 2 PUFFS TWICE DAILY TAKEN BY MOUTH
     Route: 048
     Dates: start: 20131007, end: 20131007

REACTIONS (6)
  - Asthma [None]
  - Throat irritation [None]
  - Wheezing [None]
  - Chest discomfort [None]
  - Hypopnoea [None]
  - Dyspnoea [None]
